FAERS Safety Report 5256269-7 (Version None)
Quarter: 2007Q1

REPORT INFORMATION
  Report Type: 
  Country: None (occurrence: None)
  Receive Date: 20070302
  Receipt Date: 20070302
  Transmission Date: 20070707
  Serious: Yes (Other)
  Sender: FDA-Public Use
  Company Number: None

PATIENT
  Age: 35 Year
  Sex: Female
  Weight: 61.2356 kg

DRUGS (1)
  1. CYMBALTA [Suspect]
     Indication: FIBROMYALGIA
     Dosage: 60MGS 1 CAPSULE EVERY DAY PO
     Route: 048
     Dates: start: 20070102, end: 20070301

REACTIONS (16)
  - ALTERED VISUAL DEPTH PERCEPTION [None]
  - CRYING [None]
  - DEHYDRATION [None]
  - DEPRESSION [None]
  - DIARRHOEA [None]
  - DRUG INEFFECTIVE [None]
  - DRUG WITHDRAWAL SYNDROME [None]
  - HYPOAESTHESIA [None]
  - IMPAIRED DRIVING ABILITY [None]
  - LETHARGY [None]
  - MIGRAINE [None]
  - MOOD SWINGS [None]
  - NAUSEA [None]
  - PARAESTHESIA [None]
  - SOMNOLENCE [None]
  - VERTIGO [None]
